FAERS Safety Report 5486575-2 (Version None)
Quarter: 2007Q4

REPORT INFORMATION
  Report Type: 
  Country: None (occurrence: None)
  Receive Date: 20071016
  Receipt Date: 20071011
  Transmission Date: 20080405
  Serious: Yes (Hospitalization)
  Sender: FDA-Public Use
  Company Number: FR-BRISTOL-MYERS SQUIBB COMPANY-13939111

PATIENT
  Age: 84 Year
  Sex: Female

DRUGS (14)
  1. COUMADIN [Suspect]
     Indication: ATRIAL FIBRILLATION
     Dates: start: 20060101, end: 20070921
  2. LEVOTHYROX [Suspect]
  3. MELAXOSE [Suspect]
  4. GLUCOPHAGE [Concomitant]
  5. MODOPAR [Concomitant]
  6. ANAFRANIL [Concomitant]
  7. XANAX [Concomitant]
  8. KENZEN [Concomitant]
  9. LASIX [Concomitant]
  10. FORLAX [Concomitant]
     Dosage: MACROGOL 4000
  11. VEINAMITOL [Concomitant]
  12. GAVISCON [Concomitant]
  13. INEXIUM [Concomitant]
  14. PROPOFOL [Concomitant]

REACTIONS (4)
  - ANAEMIA [None]
  - FALL [None]
  - PROTHROMBIN TIME SHORTENED [None]
  - SUBCUTANEOUS HAEMATOMA [None]
